FAERS Safety Report 21892633 (Version 1)
Quarter: 2023Q1

REPORT INFORMATION
  Report Type: Spontaneous
  Country: CN (occurrence: CN)
  Receive Date: 20230120
  Receipt Date: 20230120
  Transmission Date: 20230418
  Serious: No
  Sender: FDA-Public Use
  Company Number: CN-PFIZER INC-202300025378

PATIENT
  Age: 60 Year
  Sex: Male

DRUGS (1)
  1. PAXLOVID [Suspect]
     Active Substance: NIRMATRELVIR\RITONAVIR
     Indication: COVID-19 treatment
     Dosage: 1 TABLET OF NIRMATRELVIR AND 1 TABLET OF RITONAVIR
     Route: 048
     Dates: start: 20230118

REACTIONS (1)
  - Prescription drug used without a prescription [Unknown]

NARRATIVE: CASE EVENT DATE: 20230118
